FAERS Safety Report 21780318 (Version 1)
Quarter: 2022Q4

REPORT INFORMATION
  Report Type: Spontaneous
  Country: IT (occurrence: IT)
  Receive Date: 20221227
  Receipt Date: 20221227
  Transmission Date: 20230113
  Serious: Yes (Hospitalization, Other)
  Sender: FDA-Public Use
  Company Number: IT-KRKA-IT2022K04893LIT

PATIENT
  Age: 66 Year
  Sex: Male

DRUGS (22)
  1. BORTEZOMIB [Suspect]
     Active Substance: BORTEZOMIB
     Indication: Monoclonal gammopathy
     Dosage: 1.3 MILLIGRAM/SQ. METER (1.3 MG/M2 ON DAYS 1, 8, 15, 22 1, 8, 15,22, EACH OF THESE FOR 35 DAYS)
     Route: 058
  2. LENALIDOMIDE [Suspect]
     Active Substance: LENALIDOMIDE
     Indication: Monoclonal gammopathy
     Dosage: UNK
     Route: 065
  3. CYCLOPHOSPHAMIDE [Suspect]
     Active Substance: CYCLOPHOSPHAMIDE
     Indication: Monoclonal gammopathy
     Dosage: 1000 MILLIGRAM, EVERY MONTH (500 MG, EVERY 2 WEEKS)
     Route: 042
  4. CYCLOPHOSPHAMIDE [Suspect]
     Active Substance: CYCLOPHOSPHAMIDE
     Indication: Renal failure
     Dosage: 350 MILLIGRAM (350 MG ON DAYS 1, 8, 15 1, 8, 15,22, EACH OF THESE FOR 35 DAYS)
     Route: 048
  5. CYCLOPHOSPHAMIDE [Suspect]
     Active Substance: CYCLOPHOSPHAMIDE
     Dosage: 500 MILLIGRAM, EVERY TWO WEEKS
     Route: 065
  6. DARATUMUMAB [Suspect]
     Active Substance: DARATUMUMAB
     Indication: Monoclonal gammopathy
     Dosage: 32 MILLIGRAM, EVERY MONTH (16 MG EVERY 2 WEEKS)
     Route: 065
  7. DARATUMUMAB [Suspect]
     Active Substance: DARATUMUMAB
     Dosage: 16 MILLIGRAM/KILOGRAM, EVERY WEEK
     Route: 042
  8. DARATUMUMAB [Suspect]
     Active Substance: DARATUMUMAB
     Dosage: 16 MILLIGRAM/KILOGRAM, EVERY WEEK
     Route: 042
  9. DARATUMUMAB [Suspect]
     Active Substance: DARATUMUMAB
     Dosage: 32 MILLIGRAM/KILOGRAM, EVERY MONTH (16 MG EVERY 2 WEEKS)
     Route: 065
  10. COTRIMOXAZOLE [Suspect]
     Active Substance: SULFAMETHOXAZOLE\TRIMETHOPRIM
     Indication: Prophylaxis
     Dosage: UNK
     Route: 065
  11. GANCICLOVIR [Suspect]
     Active Substance: GANCICLOVIR
     Indication: Monoclonal gammopathy
     Dosage: 1.25 MILLIGRAM/KILOGRAM, 3 TIMES WEEK
     Route: 042
  12. DEXAMETHASONE [Suspect]
     Active Substance: DEXAMETHASONE
     Indication: Monoclonal gammopathy
     Dosage: 20 MILLIGRAM (20 MG ON DAYS 1, 8, 15,22, EACH OF THESE FOR 35 DAYS)
     Route: 048
  13. DEXAMETHASONE [Suspect]
     Active Substance: DEXAMETHASONE
     Dosage: 20 MILLIGRAM (20 MG ON THE DAY OF CHEMOTHERAPY)
     Route: 048
  14. PREDNISONE [Concomitant]
     Active Substance: PREDNISONE
     Indication: Product used for unknown indication
     Dosage: 50 MILLIGRAM
     Route: 048
  15. ACYCLOVIR [Concomitant]
     Active Substance: ACYCLOVIR
     Indication: Prophylaxis
     Dosage: UNK
     Route: 065
  16. FLUCONAZOLE [Concomitant]
     Active Substance: FLUCONAZOLE
     Indication: Prophylaxis
     Dosage: UNK
     Route: 065
  17. METHYLPREDNISOLONE [Concomitant]
     Active Substance: METHYLPREDNISOLONE
     Indication: Product used for unknown indication
     Dosage: 125 MILLIGRAM, ONCE A DAY
     Route: 042
  18. MEROPENEM [Concomitant]
     Active Substance: MEROPENEM
     Indication: Product used for unknown indication
     Dosage: UNK
     Route: 065
  19. TEICOPLANIN [Concomitant]
     Active Substance: TEICOPLANIN
     Indication: Product used for unknown indication
     Dosage: UNK
     Route: 065
  20. VORICONAZOLE [Concomitant]
     Active Substance: VORICONAZOLE
     Indication: Product used for unknown indication
     Dosage: UNK
     Route: 065
  21. VALGANCICLOVIR [Concomitant]
     Active Substance: VALGANCICLOVIR
     Indication: Product used for unknown indication
     Dosage: UNK
     Route: 065
  22. COLISTIN [Concomitant]
     Active Substance: COLISTIN
     Indication: Product used for unknown indication
     Dosage: 1000000 INTERNATIONAL UNIT, 3 TIMES A DAY
     Route: 065

REACTIONS (7)
  - Renal impairment [Recovering/Resolving]
  - Nephrotic syndrome [Unknown]
  - Cutaneous vasculitis [Unknown]
  - Oedema peripheral [Unknown]
  - Petechiae [Unknown]
  - Off label use [Unknown]
  - Drug ineffective [Unknown]
